FAERS Safety Report 5186280-6 (Version None)
Quarter: 2006Q4

REPORT INFORMATION
  Report Type: 
  Country: None (occurrence: None)
  Receive Date: 20061220
  Receipt Date: 20061212
  Transmission Date: 20070319
  Serious: Yes (Death)
  Sender: FDA-Public Use
  Company Number: AU-JNJFOC-20061203210

PATIENT
  Sex: Male

DRUGS (6)
  1. REMINYL [Suspect]
     Indication: DRUG USE FOR UNKNOWN INDICATION
  2. GLYCERYL TRINITRATE [Suspect]
     Indication: CHEST PAIN
     Route: 060
  3. ASPIRIN [Concomitant]
  4. ATACAND HCT [Concomitant]
     Dosage: 16/2.5
  5. ADALAT [Concomitant]
  6. OXYPRENOLOL [Concomitant]

REACTIONS (4)
  - BRADYCARDIA [None]
  - ELECTROCARDIOGRAM ST SEGMENT DEPRESSION [None]
  - HYPOTENSION [None]
  - PULMONARY OEDEMA [None]
